FAERS Safety Report 5869893-5 (Version None)
Quarter: 2008Q3

REPORT INFORMATION
  Report Type: 
  Country: None (occurrence: None)
  Receive Date: 20080904
  Receipt Date: 20080826
  Transmission Date: 20090109
  Serious: Yes (Other)
  Sender: FDA-Public Use
  Company Number: PHRM2008FR01516

PATIENT
  Sex: Female

DRUGS (8)
  1. TRILEPTAL [Suspect]
     Indication: NEURALGIA
     Dosage: 900 MG/DAILY
     Route: 048
     Dates: start: 20070111
  2. LYRICA [Suspect]
     Indication: NEURALGIA
     Dosage: 300 MG/DAILY
     Dates: start: 20071120
  3. LIORESAL [Concomitant]
     Indication: MUSCLE SPASTICITY
     Dosage: 60 MG /DAY
     Dates: start: 20070109
  4. DURAGESIC-100 [Concomitant]
     Indication: ARTHRALGIA
     Dosage: 50 UG/H
     Route: 062
     Dates: start: 20070109
  5. SODIUM CHLORIDE 0.9% [Concomitant]
     Indication: HYPONATRAEMIA
     Dosage: UNK
     Dates: start: 20070327
  6. OGASTRO [Concomitant]
     Dosage: UNK
     Dates: start: 20070327
  7. TARDYFERON [Concomitant]
     Indication: DEFICIENCY ANAEMIA
     Dosage: 80 MG, UNK
     Dates: start: 20070327
  8. ANAFRANIL [Concomitant]
     Indication: DEPRESSION
     Dosage: 50MG/DAY
     Dates: start: 20071204

REACTIONS (6)
  - GASTRECTOMY [None]
  - HAEMOGLOBIN DECREASED [None]
  - PANCYTOPENIA [None]
  - PLATELET COUNT DECREASED [None]
  - THROMBOCYTOPENIA [None]
  - WHITE BLOOD CELL COUNT DECREASED [None]
